FAERS Safety Report 5133482-0 (Version None)
Quarter: 2006Q4

REPORT INFORMATION
  Report Type: 
  Country: None (occurrence: None)
  Receive Date: 20061018
  Receipt Date: 20061005
  Transmission Date: 20070319
  Serious: Yes (Hospitalization)
  Sender: FDA-Public Use
  Company Number: 2006121001

PATIENT
  Sex: Female
  Weight: 75 kg

DRUGS (8)
  1. SUTENT [Suspect]
     Indication: RENAL CELL CARCINOMA STAGE UNSPECIFIED
     Dosage: 4X12.5 MG QD X 4 WEEKS, 2 WEEKS OFF, ORAL
     Route: 048
     Dates: start: 20060901
  2. BAY 43-9006          (BAY 43-9006) [Suspect]
     Indication: RENAL CELL CARCINOMA STAGE UNSPECIFIED
     Dosage: 2X200 MG (BID FOR 6 WEEKS FOR 9 CYCLES), ORAL
     Route: 048
     Dates: start: 20060901
  3. DYAZIDE [Concomitant]
  4. INDERAL [Concomitant]
  5. MONOPRIL [Concomitant]
  6. NIACIN [Concomitant]
  7. NORVASC [Concomitant]
  8. PROZAC [Concomitant]

REACTIONS (14)
  - ALANINE AMINOTRANSFERASE INCREASED [None]
  - ASPARTATE AMINOTRANSFERASE INCREASED [None]
  - BLOOD BILIRUBIN INCREASED [None]
  - FATIGUE [None]
  - INFECTION [None]
  - LYMPHOCYTE COUNT DECREASED [None]
  - ORAL CANDIDIASIS [None]
  - PAIN [None]
  - PLATELET COUNT DECREASED [None]
  - RESPIRATORY RATE INCREASED [None]
  - SEPSIS [None]
  - VIRAL INFECTION [None]
  - WHITE BLOOD CELL COUNT DECREASED [None]
  - YELLOW SKIN [None]
